FAERS Safety Report 9599314 (Version 1)
Quarter: 2013Q4

REPORT INFORMATION
  Report Type: Spontaneous
  Country: US (occurrence: US)
  Receive Date: 20131004
  Receipt Date: 20131004
  Transmission Date: 20140711
  Serious: No
  Sender: FDA-Public Use
  Company Number: US-AMGEN-USASP2013028964

PATIENT
  Age: 62 Year
  Sex: Female
  Weight: 95.24 kg

DRUGS (13)
  1. ENBREL [Suspect]
     Indication: RHEUMATOID ARTHRITIS
     Dosage: UNK
     Route: 058
     Dates: start: 1998, end: 201303
  2. ADVAIR [Concomitant]
     Dosage: UNK
  3. CADUET [Concomitant]
     Dosage: UNK
  4. CALCIUM [Concomitant]
     Dosage: UNK
  5. DETROL [Concomitant]
     Dosage: UNK
  6. FISH OIL [Concomitant]
     Dosage: UNK
  7. MELOXICAM [Concomitant]
     Dosage: UNK
  8. MVI [Concomitant]
     Dosage: UNK
  9. SPIRIVA [Concomitant]
     Dosage: UNK
  10. SULPHAZINE                         /00076401/ [Concomitant]
     Dosage: UNK
  11. TRIPLE FLEX [Concomitant]
     Dosage: UNK
  12. VITAMIN-C [Concomitant]
     Dosage: UNK
  13. VITAMIN D3 [Concomitant]
     Dosage: UNK

REACTIONS (1)
  - Therapeutic response decreased [Unknown]
